FAERS Safety Report 18865231 (Version 1)
Quarter: 2021Q1

REPORT INFORMATION
  Report Type: Report from Study
  Country: CA (occurrence: CA)
  Receive Date: 20210208
  Receipt Date: 20210208
  Transmission Date: 20210420
  Serious: Yes (Other)
  Sender: FDA-Public Use
  Company Number: CA-JACOBUS PHARMACEUTICAL COMPANY, INC.-2106484

PATIENT
  Age: 82 Year
  Sex: Female
  Weight: 50 kg

DRUGS (11)
  1. AZATHIOPRINE. [Concomitant]
     Active Substance: AZATHIOPRINE
  2. RISEDRONATE SODIUM. [Concomitant]
     Active Substance: RISEDRONATE SODIUM
  3. DAPSONE. [Suspect]
     Active Substance: DAPSONE
     Route: 065
  4. HYDROCHLOROTHIAZIDE. [Concomitant]
     Active Substance: HYDROCHLOROTHIAZIDE
  5. MYCOPHENOLIC ACID (MYCOPHENOLATE SODIUM) [Concomitant]
     Active Substance: MYCOPHENOLATE SODIUM
  6. ASCORBIC ACID. [Concomitant]
     Active Substance: ASCORBIC ACID
  7. METHOTREXATE. [Concomitant]
     Active Substance: METHOTREXATE
  8. CLOBETASOL PROPIONATE. [Concomitant]
     Active Substance: CLOBETASOL PROPIONATE
  9. PREDNISONE. [Concomitant]
     Active Substance: PREDNISONE
  10. FOLIC ACID. [Concomitant]
     Active Substance: FOLIC ACID
  11. RITUXAN [Concomitant]
     Active Substance: RITUXIMAB

REACTIONS (6)
  - Drug ineffective [Not Recovered/Not Resolved]
  - Pemphigus [Not Recovered/Not Resolved]
  - Product use issue [Not Recovered/Not Resolved]
  - Skin discolouration [Not Recovered/Not Resolved]
  - Off label use [Not Recovered/Not Resolved]
  - Weight decreased [Not Recovered/Not Resolved]

NARRATIVE: CASE EVENT DATE: 20200309
